FAERS Safety Report 5984399-0 (Version None)
Quarter: 2008Q4

REPORT INFORMATION
  Report Type: 
  Country: None (occurrence: None)
  Receive Date: 20081203
  Receipt Date: 20081203
  Transmission Date: 20090506
  Serious: Yes (Life-Threatening, Hospitalization, Other)
  Sender: FDA-Public Use
  Company Number: None

PATIENT

DRUGS (2)
  1. CEFTRIAXONE [Suspect]
  2. CEFTRIAXONE [Suspect]

REACTIONS (1)
  - ADVERSE EVENT [None]
